FAERS Safety Report 5607598-6 (Version None)
Quarter: 2008Q1

REPORT INFORMATION
  Report Type: 
  Country: None (occurrence: None)
  Receive Date: 20080130
  Receipt Date: 20080116
  Transmission Date: 20080703
  Serious: Yes (Other)
  Sender: FDA-Public Use
  Company Number: DE-TEVA-166880ISR

PATIENT
  Age: 54 Year
  Sex: Male

DRUGS (12)
  1. VINCRISTINE [Suspect]
     Indication: NON-HODGKIN'S LYMPHOMA STAGE III
  2. ETOPOSIDE [Suspect]
     Indication: NON-HODGKIN'S LYMPHOMA STAGE III
  3. ETOPOSIDE [Suspect]
  4. ETOPOSIDE [Suspect]
  5. DOXORUBICIN HCL [Suspect]
     Indication: NON-HODGKIN'S LYMPHOMA STAGE III
  6. CYCLOPHOSPHAMIDE [Suspect]
     Indication: NON-HODGKIN'S LYMPHOMA STAGE III
  7. CYCLOPHOSPHAMIDE [Suspect]
  8. CYCLOPHOSPHAMIDE [Suspect]
  9. RITUXIMAB [Suspect]
     Indication: NON-HODGKIN'S LYMPHOMA STAGE III
  10. FILGRASTIM [Suspect]
     Indication: HAEMATOPOIETIC STEM CELL MOBILISATION
  11. THERAPEUTIC RADIOPHARMACEUTICALS [Suspect]
     Indication: RADIOTHERAPY
  12. PREDNISONE TAB [Suspect]
     Indication: NON-HODGKIN'S LYMPHOMA STAGE III

REACTIONS (1)
  - UNEVALUABLE EVENT [None]
